FAERS Safety Report 25500109 (Version 1)
Quarter: 2025Q3

REPORT INFORMATION
  Report Type: Spontaneous
  Country: US (occurrence: US)
  Receive Date: 20250701
  Receipt Date: 20250701
  Transmission Date: 20251021
  Serious: No
  Sender: BAUSCH AND LOMB
  Company Number: US-BAUSCHBL-2025BNL011408

PATIENT
  Age: 84 Year
  Sex: Female

DRUGS (3)
  1. MINERALS\VITAMINS [Suspect]
     Active Substance: MINERALS\VITAMINS
     Indication: Macular degeneration
     Dosage: TAKING 1 VITAMIN BY MOUTH TWICE DAILY
     Route: 048
  2. MINERALS\VITAMINS [Suspect]
     Active Substance: MINERALS\VITAMINS
     Dosage: TAKING 1 VITAMIN BY MOUTH TWICE DAILY
     Route: 048
     Dates: end: 202506
  3. DEXAMETHASONE\NEOMYCIN\POLYMYXIN B SULFATE [Suspect]
     Active Substance: DEXAMETHASONE\NEOMYCIN\POLYMYXIN B SULFATE
     Indication: Eye disorder
     Dosage: 1 GTT TID
     Route: 047
     Dates: start: 202504

REACTIONS (5)
  - Abdominal pain upper [Unknown]
  - Abdominal discomfort [Unknown]
  - Drug ineffective [Unknown]
  - Product container issue [Unknown]
  - Product label issue [Unknown]

NARRATIVE: CASE EVENT DATE: 20250101
